FAERS Safety Report 9832247 (Version 2)
Quarter: 2014Q1

REPORT INFORMATION
  Report Type: Spontaneous
  Country: US (occurrence: US)
  Receive Date: 20140121
  Receipt Date: 20140213
  Transmission Date: 20141002
  Serious: Yes (Other)
  Sender: FDA-Public Use
  Company Number: PHEH2014US001412

PATIENT
  Age: 85 Year
  Sex: Female

DRUGS (2)
  1. EXELON PATCH [Suspect]
     Indication: DEMENTIA ALZHEIMER^S TYPE
     Dosage: 4.6 MG, QD
     Route: 062
     Dates: start: 20131112
  2. EXELON PATCH [Suspect]
     Indication: MEMORY IMPAIRMENT

REACTIONS (2)
  - Cutaneous lupus erythematosus [Unknown]
  - Skin exfoliation [Recovered/Resolved]
